FAERS Safety Report 8193600-7 (Version None)
Quarter: 2012Q1

REPORT INFORMATION
  Report Type: 
  Country: None (occurrence: None)
  Receive Date: 20120308
  Receipt Date: 20120306
  Transmission Date: 20120608
  Serious: Yes (Other)
  Sender: FDA-Public Use
  Company Number: GB-PFIZER INC-2012060577

PATIENT
  Age: 36 Year
  Sex: Female
  Weight: 53.55 kg

DRUGS (6)
  1. FLUCONAZOLE [Concomitant]
     Dosage: UNK
     Dates: start: 20120116, end: 20120117
  2. NICOTINE [Concomitant]
     Dosage: UNK
     Dates: start: 20120214, end: 20120219
  3. PHENOXYMETHYLPENICILLIN [Concomitant]
     Dosage: UNK
     Dates: start: 20120116, end: 20120123
  4. VARENICLINE TARTRATE [Suspect]
     Dosage: UNK
     Dates: start: 20120206, end: 20120223
  5. AMOXICILLIN [Concomitant]
     Dosage: UNK
     Dates: start: 20120105, end: 20120112
  6. HYDROCORTISONE [Concomitant]
     Dosage: UNK
     Dates: start: 20120116, end: 20120122

REACTIONS (2)
  - ALCOHOL INTERACTION [None]
  - ABNORMAL BEHAVIOUR [None]
